FAERS Safety Report 12870936 (Version 1)
Quarter: 2016Q4

REPORT INFORMATION
  Report Type: Spontaneous
  Country: US (occurrence: US)
  Receive Date: 20161021
  Receipt Date: 20161021
  Transmission Date: 20170207
  Serious: Yes (Other)
  Sender: FDA-Public Use
  Company Number: US-WEST-WARD PHARMACEUTICALS CORP.-2016-RO-00402RO

PATIENT
  Age: 77 Year
  Sex: Female

DRUGS (1)
  1. LETROZOLE. [Suspect]
     Active Substance: LETROZOLE
     Indication: INVASIVE DUCTAL BREAST CARCINOMA
     Dosage: 2.5 MG
     Route: 048
     Dates: start: 201211

REACTIONS (2)
  - Condition aggravated [Not Recovered/Not Resolved]
  - Keloid scar [Not Recovered/Not Resolved]

NARRATIVE: CASE EVENT DATE: 201311
